FAERS Safety Report 4501432-3 (Version None)
Quarter: 2004Q4

REPORT INFORMATION
  Report Type: 
  Country: None (occurrence: None)
  Receive Date: 20041110
  Receipt Date: 20041104
  Transmission Date: 20050328
  Serious: Yes (Hospitalization)
  Sender: FDA-Public Use
  Company Number: TPA2004A01196

PATIENT
  Age: 53 Year
  Sex: Male
  Weight: 116.1208 kg

DRUGS (2)
  1. ACTOS [Suspect]
     Indication: DIABETES MELLITUS NON-INSULIN-DEPENDENT
     Dosage: 30 MG, 1 IN 1 D, PER ORAL
     Route: 048
     Dates: start: 20031201
  2. GLYBURIDE (GLIBENCLAMIDE) (5 MILLIGRAM) [Concomitant]

REACTIONS (2)
  - HYPERTENSION [None]
  - WEIGHT INCREASED [None]
